FAERS Safety Report 6796077-9 (Version None)
Quarter: 2010Q2

REPORT INFORMATION
  Report Type: 
  Country: None (occurrence: None)
  Receive Date: 20100625
  Receipt Date: 20100514
  Transmission Date: 20101027
  Serious: Yes (Death, Life-Threatening, Other)
  Sender: FDA-Public Use
  Company Number: US-BAXTER-2010BH001307

PATIENT
  Age: 68 Year
  Sex: Male

DRUGS (117)
  1. HEPARIN SODIUM [Suspect]
     Indication: STERNOTOMY
     Route: 040
     Dates: start: 20080112, end: 20080112
  2. HEPARIN SODIUM [Suspect]
     Indication: AORTIC VALVE REPLACEMENT
     Route: 040
     Dates: start: 20080112, end: 20080112
  3. HEPARIN SODIUM [Suspect]
     Indication: CORONARY ARTERY BYPASS
     Route: 040
     Dates: start: 20080112, end: 20080112
  4. HEPARIN SODIUM [Suspect]
     Indication: INTRA-AORTIC BALLOON PLACEMENT
     Route: 040
     Dates: start: 20080112, end: 20080112
  5. HEPARIN SODIUM [Suspect]
     Indication: VENOUS LIGATION
     Route: 040
     Dates: start: 20080112, end: 20080112
  6. HEPARIN SODIUM [Suspect]
     Indication: CAROTID ENDARTERECTOMY
     Route: 040
     Dates: start: 20080112, end: 20080112
  7. HEPARIN SODIUM [Suspect]
     Indication: ACUTE MYOCARDIAL INFARCTION
     Route: 040
     Dates: start: 20080112, end: 20080112
  8. HEPARIN SODIUM [Suspect]
     Indication: AORTIC STENOSIS
     Route: 040
     Dates: start: 20080112, end: 20080112
  9. HEPARIN SODIUM [Suspect]
     Indication: INTRAVENOUS CATHETER MANAGEMENT
     Route: 040
     Dates: start: 20080112, end: 20080112
  10. HEPARIN SODIUM [Suspect]
     Route: 040
     Dates: start: 20080114, end: 20080114
  11. HEPARIN SODIUM [Suspect]
     Route: 040
     Dates: start: 20080114, end: 20080114
  12. HEPARIN SODIUM [Suspect]
     Route: 040
     Dates: start: 20080114, end: 20080114
  13. HEPARIN SODIUM [Suspect]
     Route: 040
     Dates: start: 20080114, end: 20080114
  14. HEPARIN SODIUM [Suspect]
     Route: 040
     Dates: start: 20080114, end: 20080114
  15. HEPARIN SODIUM [Suspect]
     Route: 040
     Dates: start: 20080114, end: 20080114
  16. HEPARIN SODIUM [Suspect]
     Route: 040
     Dates: start: 20080114, end: 20080114
  17. HEPARIN SODIUM [Suspect]
     Route: 040
     Dates: start: 20080114, end: 20080114
  18. HEPARIN SODIUM [Suspect]
     Route: 040
     Dates: start: 20080114, end: 20080114
  19. HEPARIN SODIUM [Suspect]
     Route: 040
     Dates: start: 20080116, end: 20080116
  20. HEPARIN SODIUM [Suspect]
     Route: 040
     Dates: start: 20080116, end: 20080116
  21. HEPARIN SODIUM [Suspect]
     Route: 040
     Dates: start: 20080116, end: 20080116
  22. HEPARIN SODIUM [Suspect]
     Route: 040
     Dates: start: 20080116, end: 20080116
  23. HEPARIN SODIUM [Suspect]
     Route: 040
     Dates: start: 20080116, end: 20080116
  24. HEPARIN SODIUM [Suspect]
     Route: 040
     Dates: start: 20080116, end: 20080116
  25. HEPARIN SODIUM [Suspect]
     Route: 040
     Dates: start: 20080116, end: 20080116
  26. HEPARIN SODIUM [Suspect]
     Route: 040
     Dates: start: 20080116, end: 20080116
  27. HEPARIN SODIUM [Suspect]
     Route: 040
     Dates: start: 20080116, end: 20080116
  28. HEPARIN SODIUM [Suspect]
     Route: 042
     Dates: start: 20080112, end: 20080115
  29. HEPARIN SODIUM [Suspect]
     Route: 042
     Dates: start: 20080112, end: 20080115
  30. HEPARIN SODIUM [Suspect]
     Route: 042
     Dates: start: 20080112, end: 20080115
  31. HEPARIN SODIUM [Suspect]
     Route: 042
     Dates: start: 20080112, end: 20080115
  32. HEPARIN SODIUM [Suspect]
     Route: 042
     Dates: start: 20080112, end: 20080115
  33. HEPARIN SODIUM [Suspect]
     Route: 042
     Dates: start: 20080112, end: 20080115
  34. HEPARIN SODIUM [Suspect]
     Route: 042
     Dates: start: 20080112, end: 20080115
  35. HEPARIN SODIUM [Suspect]
     Route: 042
     Dates: start: 20080112, end: 20080115
  36. HEPARIN SODIUM [Suspect]
     Route: 042
     Dates: start: 20080112, end: 20080115
  37. HEPARIN SODIUM [Suspect]
     Route: 065
     Dates: start: 20080116, end: 20080116
  38. HEPARIN SODIUM [Suspect]
     Route: 065
     Dates: start: 20080116, end: 20080116
  39. HEPARIN SODIUM [Suspect]
     Route: 065
     Dates: start: 20080116, end: 20080116
  40. HEPARIN SODIUM [Suspect]
     Route: 065
     Dates: start: 20080116, end: 20080116
  41. HEPARIN SODIUM [Suspect]
     Route: 065
     Dates: start: 20080116, end: 20080116
  42. HEPARIN SODIUM [Suspect]
     Route: 065
     Dates: start: 20080116, end: 20080116
  43. HEPARIN SODIUM [Suspect]
     Route: 065
     Dates: start: 20080116, end: 20080116
  44. HEPARIN SODIUM [Suspect]
     Route: 065
     Dates: start: 20080116, end: 20080116
  45. HEPARIN SODIUM [Suspect]
     Route: 065
     Dates: start: 20080116, end: 20080116
  46. HEPARIN SODIUM [Suspect]
     Route: 065
     Dates: start: 20080120, end: 20080120
  47. HEPARIN SODIUM [Suspect]
     Route: 065
     Dates: start: 20080120, end: 20080120
  48. HEPARIN SODIUM [Suspect]
     Route: 065
     Dates: start: 20080120, end: 20080120
  49. HEPARIN SODIUM [Suspect]
     Route: 065
     Dates: start: 20080120, end: 20080120
  50. HEPARIN SODIUM [Suspect]
     Route: 065
     Dates: start: 20080120, end: 20080120
  51. HEPARIN SODIUM [Suspect]
     Route: 065
     Dates: start: 20080120, end: 20080120
  52. HEPARIN SODIUM [Suspect]
     Route: 065
     Dates: start: 20080120, end: 20080120
  53. HEPARIN SODIUM [Suspect]
     Route: 065
     Dates: start: 20080120, end: 20080120
  54. HEPARIN SODIUM [Suspect]
     Route: 065
     Dates: start: 20080120, end: 20080120
  55. HEPARIN SODIUM [Suspect]
     Route: 065
     Dates: start: 20080208, end: 20080208
  56. HEPARIN SODIUM [Suspect]
     Route: 065
     Dates: start: 20080208, end: 20080208
  57. HEPARIN SODIUM [Suspect]
     Route: 065
     Dates: start: 20080208, end: 20080208
  58. HEPARIN SODIUM [Suspect]
     Route: 065
     Dates: start: 20080208, end: 20080208
  59. HEPARIN SODIUM [Suspect]
     Route: 065
     Dates: start: 20080208, end: 20080208
  60. HEPARIN SODIUM [Suspect]
     Route: 065
     Dates: start: 20080208, end: 20080208
  61. HEPARIN SODIUM [Suspect]
     Route: 065
     Dates: start: 20080208, end: 20080208
  62. HEPARIN SODIUM [Suspect]
     Route: 065
     Dates: start: 20080208, end: 20080208
  63. HEPARIN SODIUM [Suspect]
     Route: 065
     Dates: start: 20080208, end: 20080208
  64. HEPARIN SODIUM [Suspect]
     Route: 042
     Dates: start: 20080116, end: 20080116
  65. HEPARIN SODIUM [Suspect]
     Route: 042
     Dates: start: 20080116, end: 20080116
  66. HEPARIN SODIUM [Suspect]
     Route: 042
     Dates: start: 20080116, end: 20080116
  67. HEPARIN SODIUM [Suspect]
     Route: 042
     Dates: start: 20080116, end: 20080116
  68. HEPARIN SODIUM [Suspect]
     Route: 042
     Dates: start: 20080116, end: 20080116
  69. HEPARIN SODIUM [Suspect]
     Route: 042
     Dates: start: 20080116, end: 20080116
  70. HEPARIN SODIUM [Suspect]
     Route: 042
     Dates: start: 20080116, end: 20080116
  71. HEPARIN SODIUM [Suspect]
     Route: 042
     Dates: start: 20080116, end: 20080116
  72. HEPARIN SODIUM [Suspect]
     Route: 042
     Dates: start: 20080116, end: 20080116
  73. HEPARIN SODIUM [Suspect]
     Route: 042
     Dates: start: 20080116, end: 20080116
  74. HEPARIN SODIUM [Suspect]
     Route: 042
     Dates: start: 20080116, end: 20080116
  75. HEPARIN SODIUM [Suspect]
     Route: 042
     Dates: start: 20080116, end: 20080116
  76. HEPARIN SODIUM [Suspect]
     Route: 042
     Dates: start: 20080116, end: 20080116
  77. HEPARIN SODIUM [Suspect]
     Route: 042
     Dates: start: 20080116, end: 20080116
  78. HEPARIN SODIUM [Suspect]
     Route: 042
     Dates: start: 20080116, end: 20080116
  79. HEPARIN SODIUM [Suspect]
     Route: 042
     Dates: start: 20080116, end: 20080116
  80. HEPARIN SODIUM [Suspect]
     Route: 042
     Dates: start: 20080116, end: 20080116
  81. HEPARIN SODIUM [Suspect]
     Route: 042
     Dates: start: 20080116, end: 20080116
  82. HEPARIN SODIUM [Suspect]
     Route: 042
     Dates: start: 20080120, end: 20080120
  83. HEPARIN SODIUM [Suspect]
     Route: 042
     Dates: start: 20080120, end: 20080120
  84. HEPARIN SODIUM [Suspect]
     Route: 042
     Dates: start: 20080120, end: 20080120
  85. HEPARIN SODIUM [Suspect]
     Route: 042
     Dates: start: 20080120, end: 20080120
  86. HEPARIN SODIUM [Suspect]
     Route: 042
     Dates: start: 20080120, end: 20080120
  87. HEPARIN SODIUM [Suspect]
     Route: 042
     Dates: start: 20080120, end: 20080120
  88. HEPARIN SODIUM [Suspect]
     Route: 042
     Dates: start: 20080120, end: 20080120
  89. HEPARIN SODIUM [Suspect]
     Route: 042
     Dates: start: 20080120, end: 20080120
  90. HEPARIN SODIUM [Suspect]
     Route: 042
     Dates: start: 20080120, end: 20080120
  91. LASIX [Concomitant]
     Indication: DRUG USE FOR UNKNOWN INDICATION
     Route: 065
  92. PLAVIX [Concomitant]
     Indication: DRUG USE FOR UNKNOWN INDICATION
     Route: 065
  93. COREG [Concomitant]
     Indication: DRUG USE FOR UNKNOWN INDICATION
     Route: 065
  94. CRESTOR [Concomitant]
     Indication: DRUG USE FOR UNKNOWN INDICATION
     Route: 065
  95. RAMIPRIL [Concomitant]
     Indication: DRUG USE FOR UNKNOWN INDICATION
     Route: 065
  96. GLUCOVANCE [Concomitant]
     Indication: DRUG USE FOR UNKNOWN INDICATION
     Route: 065
  97. IMDUR [Concomitant]
     Indication: DRUG USE FOR UNKNOWN INDICATION
     Route: 065
  98. PANTOPRAZOLE [Concomitant]
     Indication: DRUG USE FOR UNKNOWN INDICATION
     Route: 065
  99. ALBUTEROL SULFATE [Concomitant]
     Indication: DRUG USE FOR UNKNOWN INDICATION
     Route: 065
  100. MAGNESIUM HYDROXIDE TAB [Concomitant]
     Indication: DRUG USE FOR UNKNOWN INDICATION
     Route: 065
  101. METOPROLOL TARTRATE [Concomitant]
     Indication: DRUG USE FOR UNKNOWN INDICATION
     Route: 065
  102. NORMAL SALINE [Concomitant]
     Indication: DRUG USE FOR UNKNOWN INDICATION
     Route: 065
  103. ONDANSETRON HYDROCHLORIDE [Concomitant]
     Indication: DRUG USE FOR UNKNOWN INDICATION
     Route: 065
  104. ACETAMINOPHEN W/ PROPOXYPHENE HCL [Concomitant]
     Indication: DRUG USE FOR UNKNOWN INDICATION
     Route: 065
  105. OXYCODONE HYDROCHLORIDE [Concomitant]
     Indication: DRUG USE FOR UNKNOWN INDICATION
     Route: 065
  106. PROPOFOL [Concomitant]
     Indication: DRUG USE FOR UNKNOWN INDICATION
     Route: 065
  107. MEPERIDINE HCL [Concomitant]
     Indication: DRUG USE FOR UNKNOWN INDICATION
     Route: 065
  108. POTASSIUM CHLORIDE [Concomitant]
     Indication: DRUG USE FOR UNKNOWN INDICATION
     Route: 065
  109. NITROGLYCERIN [Concomitant]
     Indication: DRUG USE FOR UNKNOWN INDICATION
     Route: 065
  110. LANSOPRAZOLE [Concomitant]
     Indication: DRUG USE FOR UNKNOWN INDICATION
     Route: 065
  111. AMIODARONE HYDROCHLORIDE [Concomitant]
     Indication: DRUG USE FOR UNKNOWN INDICATION
     Route: 065
  112. DOPAMINE HCL [Concomitant]
     Indication: DRUG USE FOR UNKNOWN INDICATION
     Route: 065
  113. NYSTATIN [Concomitant]
     Indication: DRUG USE FOR UNKNOWN INDICATION
     Route: 065
  114. INSULIN [Concomitant]
     Indication: DRUG USE FOR UNKNOWN INDICATION
     Route: 065
  115. EPINEPHRINE [Concomitant]
     Indication: DRUG USE FOR UNKNOWN INDICATION
     Route: 042
  116. NOREPINEPHRINE [Concomitant]
     Indication: DRUG USE FOR UNKNOWN INDICATION
     Route: 042
  117. SODIUM NITROPRUSSIDE [Concomitant]
     Indication: DRUG USE FOR UNKNOWN INDICATION
     Route: 042

REACTIONS (29)
  - ANAEMIA [None]
  - APHASIA [None]
  - ARRHYTHMIA [None]
  - CARDIAC TAMPONADE [None]
  - CHILLS [None]
  - CORONARY ARTERY DISEASE [None]
  - DEEP VEIN THROMBOSIS [None]
  - DYSPNOEA [None]
  - FLUID OVERLOAD [None]
  - HAEMATOMA [None]
  - HAEMODYNAMIC INSTABILITY [None]
  - HEMIPARESIS [None]
  - HEPARIN-INDUCED THROMBOCYTOPENIA [None]
  - HYPONATRAEMIA [None]
  - HYPOTENSION [None]
  - ISCHAEMIC CARDIOMYOPATHY [None]
  - MENTAL STATUS CHANGES [None]
  - NAUSEA [None]
  - OEDEMA PERIPHERAL [None]
  - PLEURAL EFFUSION [None]
  - POST PROCEDURAL HAEMORRHAGE [None]
  - RESPIRATORY FAILURE [None]
  - THROMBOSIS [None]
  - TRANSIENT ISCHAEMIC ATTACK [None]
  - UNRESPONSIVE TO STIMULI [None]
  - VENTRICULAR FIBRILLATION [None]
  - VENTRICULAR TACHYCARDIA [None]
  - WHEEZING [None]
  - WOUND SECRETION [None]
